FAERS Safety Report 19920972 (Version 1)
Quarter: 2021Q4

REPORT INFORMATION
  Report Type: Spontaneous
  Country: US (occurrence: US)
  Receive Date: 20211005
  Receipt Date: 20211005
  Transmission Date: 20220303
  Serious: No
  Sender: FDA-Public Use
  Company Number: US-ADAMAS PHARMA, LLC-2020ADA02902

PATIENT
  Sex: Male

DRUGS (2)
  1. GOCOVRI [Suspect]
     Active Substance: AMANTADINE
     Indication: Parkinson^s disease
     Dosage: 1 CAPSULE, 1X/DAY AT NIGHT
     Route: 048
     Dates: end: 20201206
  2. LEVODOPA [Concomitant]
     Active Substance: LEVODOPA

REACTIONS (2)
  - Diplopia [Not Recovered/Not Resolved]
  - Vision blurred [Not Recovered/Not Resolved]
